FAERS Safety Report 8491859-X (Version None)
Quarter: 2012Q3

REPORT INFORMATION
  Report Type: 
  Country: None (occurrence: None)
  Receive Date: 20120706
  Receipt Date: 20110805
  Transmission Date: 20120928
  Serious: No
  Sender: FDA-Public Use
  Company Number: US-GLAXOSMITHKLINE-A0939924A

PATIENT
  Age: 70 Year
  Sex: Female

DRUGS (7)
  1. DIOVAN [Concomitant]
  2. MELOXICAM [Concomitant]
  3. METFORMIN HCL [Concomitant]
  4. GABAPENTIN [Concomitant]
  5. FLOVENT [Suspect]
     Indication: ASTHMA
     Dosage: 2PUFF PER DAY
     Route: 055
     Dates: start: 20090101
  6. LIPITOR [Concomitant]
  7. OMEPRAZOLE [Concomitant]

REACTIONS (2)
  - OROPHARYNGEAL PAIN [None]
  - ORAL PAIN [None]
